FAERS Safety Report 10053433 (Version 2)
Quarter: 2014Q2

REPORT INFORMATION
  Report Type: Report from Study
  Country: FR (occurrence: FR)
  Receive Date: 20140402
  Receipt Date: 20140521
  Transmission Date: 20141212
  Serious: Yes (Hospitalization)
  Sender: FDA-Public Use
  Company Number: PHHY2014FR038699

PATIENT
  Age: 24 Year
  Sex: Female
  Weight: 80 kg

DRUGS (5)
  1. ICL670A [Suspect]
     Indication: HAEMOSIDEROSIS
     Dosage: 1500 MG, DAY
     Route: 048
     Dates: start: 200808
  2. HYDREA [Concomitant]
     Dosage: 500 MG, BID
  3. SPECIAFOLDINE [Concomitant]
  4. METHADONE [Concomitant]
  5. DEROXAT [Concomitant]

REACTIONS (4)
  - Pyelonephritis [Recovered/Resolved]
  - Dyspnoea [Recovered/Resolved]
  - Back pain [Recovered/Resolved]
  - Pyrexia [Recovered/Resolved]
